FAERS Safety Report 4360947-1 (Version None)
Quarter: 2004Q2

REPORT INFORMATION
  Report Type: 
  Country: None (occurrence: None)
  Receive Date: 20040514
  Receipt Date: 20040504
  Transmission Date: 20050107
  Serious: Yes (Disabling, Other)
  Sender: FDA-Public Use
  Company Number: USA-2004-0014407

PATIENT
  Age: 46 Year
  Sex: Female

DRUGS (1)
  1. OXYCONTIN [Suspect]
     Indication: CANCER PAIN
     Dosage: 80 MG, BID, ORAL
     Route: 048

REACTIONS (6)
  - ABDOMINAL PAIN UPPER [None]
  - DEAFNESS [None]
  - DRUG DEPENDENCE [None]
  - FEELING ABNORMAL [None]
  - MUSCLE CRAMP [None]
  - MUSCLE SPASMS [None]
